FAERS Safety Report 8194088-2 (Version None)
Quarter: 2012Q1

REPORT INFORMATION
  Report Type: 
  Country: None (occurrence: None)
  Receive Date: 20120308
  Receipt Date: 20110223
  Transmission Date: 20120608
  Serious: Yes (Other)
  Sender: FDA-Public Use
  Company Number: DE-TEVA-266555GER

PATIENT
  Age: 37 Year
  Sex: Male

DRUGS (3)
  1. PREDNISOLONE ACETATE [Suspect]
     Dosage: 10-40 MG/DAY
  2. DEXAMETHASONE [Suspect]
  3. MYCOPHENOLATE MOFETIL [Suspect]
     Dosage: 2 GRAM;

REACTIONS (5)
  - EYE PENETRATION [None]
  - CORNEAL EROSION [None]
  - HERPES SIMPLEX [None]
  - HERPES SIMPLEX OPHTHALMIC [None]
  - ULCERATIVE KERATITIS [None]
